FAERS Safety Report 8896276 (Version 1)
Quarter: 2012Q4

REPORT INFORMATION
  Report Type: Spontaneous
  Country: US (occurrence: None)
  Receive Date: 20121106
  Receipt Date: 20121106
  Transmission Date: 20130627
  Serious: Yes (Other)
  Sender: FDA-Public Use
  Company Number: None

PATIENT
  Age: 50 Year
  Sex: Female
  Weight: 106.6 kg

DRUGS (2)
  1. CRESTOR [Suspect]
     Indication: HYPERLIPIDEMIA
     Dosage: 5mg  Once daily po
     Route: 048
     Dates: start: 20081015, end: 20121101
  2. CRESTOR [Suspect]
     Indication: HEART DISEASE, UNSPECIFIED
     Dosage: 5mg  Once daily po
     Route: 048
     Dates: start: 20081015, end: 20121101

REACTIONS (6)
  - Muscle spasms [None]
  - Arthralgia [None]
  - Muscular weakness [None]
  - Abdominal pain [None]
  - Hypoaesthesia [None]
  - Hypoaesthesia [None]
